FAERS Safety Report 19570086 (Version 2)
Quarter: 2021Q3

REPORT INFORMATION
  Report Type: Spontaneous
  Country: US (occurrence: US)
  Receive Date: 20210715
  Receipt Date: 20210727
  Transmission Date: 20211014
  Serious: Yes (Life-Threatening, Hospitalization)
  Sender: FDA-Public Use
  Company Number: US-TEVA-2021-US-1932017

PATIENT
  Age: 33 Year
  Sex: Male

DRUGS (3)
  1. LIDOCAINE. [Suspect]
     Active Substance: LIDOCAINE
     Indication: DRUG ABUSE
     Route: 048
  2. LEVAMISOLE [Suspect]
     Active Substance: LEVAMISOLE
     Indication: DRUG ABUSE
     Route: 048
  3. SALINE [Suspect]
     Active Substance: SODIUM CHLORIDE
     Indication: BLOOD PRESSURE DECREASED
     Dosage: BOLUS
     Route: 050

REACTIONS (4)
  - Drug ineffective [Unknown]
  - Unresponsive to stimuli [Recovered/Resolved]
  - Drug abuse [Unknown]
  - Methaemoglobinaemia [Recovering/Resolving]
